FAERS Safety Report 5559992-X (Version None)
Quarter: 2007Q4

REPORT INFORMATION
  Report Type: 
  Country: None (occurrence: None)
  Receive Date: 20071214
  Receipt Date: 20071016
  Transmission Date: 20080405
  Serious: No
  Sender: FDA-Public Use
  Company Number: US-ABBOTT-07P-163-0421751-00

PATIENT
  Sex: Female
  Weight: 88.076 kg

DRUGS (5)
  1. HUMIRA [Suspect]
     Indication: CROHN'S DISEASE
     Route: 058
     Dates: start: 20070818, end: 20070818
  2. HUMIRA [Suspect]
     Route: 058
     Dates: start: 20070819, end: 20070926
  3. PREDNISONE [Suspect]
     Indication: DRUG USE FOR UNKNOWN INDICATION
  4. MYCOPHENOLATE MOFETIL [Concomitant]
     Indication: DRUG USE FOR UNKNOWN INDICATION
  5. RABEPRAZOLE SODIUM [Concomitant]
     Indication: DRUG USE FOR UNKNOWN INDICATION

REACTIONS (6)
  - FATIGUE [None]
  - FEELING JITTERY [None]
  - MYALGIA [None]
  - PAIN IN EXTREMITY [None]
  - PALPITATIONS [None]
  - PANIC ATTACK [None]
